FAERS Safety Report 8068719-1 (Version None)
Quarter: 2012Q1

REPORT INFORMATION
  Report Type: 
  Country: None (occurrence: None)
  Receive Date: 20120124
  Receipt Date: 20111123
  Transmission Date: 20120608
  Serious: No
  Sender: FDA-Public Use
  Company Number: US-AMGEN-USASP2011062568

PATIENT
  Age: 66 Year
  Sex: Female
  Weight: 70.3 kg

DRUGS (3)
  1. MILK OF MAGNESIA TAB [Concomitant]
     Dosage: 1 ML, QD
  2. MOTRIN [Concomitant]
  3. PROLIA [Suspect]
     Indication: OSTEOPOROSIS POSTMENOPAUSAL
     Dosage: 60 MG, Q6MO
     Dates: start: 20110901

REACTIONS (5)
  - JOINT SWELLING [None]
  - GAIT DISTURBANCE [None]
  - WEIGHT INCREASED [None]
  - STRESS [None]
  - MUSCLE SPASMS [None]
